FAERS Safety Report 13373872 (Version 1)
Quarter: 2017Q1

REPORT INFORMATION
  Report Type: Spontaneous
  Country: US (occurrence: US)
  Receive Date: 20170325
  Receipt Date: 20170325
  Transmission Date: 20170429
  Serious: Yes (Other)
  Sender: FDA-Public Use
  Company Number: None

PATIENT
  Age: 35 Year
  Sex: Female

DRUGS (7)
  1. PRENATAL [Concomitant]
     Active Substance: VITAMINS
  2. SINEX [Concomitant]
     Active Substance: ACETAMINOPHEN\DOXYLAMINE SUCCINATE\PHENYLEPHRINE HYDROCHLORIDE
  3. ENOXAPARIN 40 MG/0.4 ML PFS AMPHASTAR [Suspect]
     Active Substance: ENOXAPARIN
     Indication: BUDD-CHIARI SYNDROME
     Dosage: 40 MG QD1-10 OF 30 DS SQ
     Route: 058
     Dates: start: 201507
  4. IBUPROFEN. [Concomitant]
     Active Substance: IBUPROFEN
  5. METAMIZOLE SODIUM [Concomitant]
     Active Substance: METAMIZOLE SODIUM
  6. CALCIUM [Concomitant]
     Active Substance: CALCIUM
  7. LEVOTHYROXIN [Concomitant]
     Active Substance: LEVOTHYROXINE

REACTIONS (2)
  - Pregnancy [None]
  - Abortion spontaneous [None]

NARRATIVE: CASE EVENT DATE: 201702
